FAERS Safety Report 9499167 (Version 3)
Quarter: 2014Q2

REPORT INFORMATION
  Report Type: Spontaneous
  Country: AR (occurrence: AR)
  Receive Date: 20130905
  Receipt Date: 20140422
  Transmission Date: 20141212
  Serious: Yes (Other)
  Sender: FDA-Public Use
  Company Number: AR-AMGEN-ARGSP2013061917

PATIENT
  Age: 56 Year
  Sex: Female

DRUGS (2)
  1. ENBREL [Suspect]
     Indication: RHEUMATOID ARTHRITIS
     Dosage: 50 MG, WEEKLY
     Route: 058
     Dates: start: 20110103
  2. METILPRES [Concomitant]
     Dosage: UNK

REACTIONS (7)
  - Diverticulum intestinal [Recovering/Resolving]
  - Blood cholesterol decreased [Not Recovered/Not Resolved]
  - Arthralgia [Recovering/Resolving]
  - Urine analysis abnormal [Recovered/Resolved]
  - Blood test abnormal [Recovered/Resolved]
  - Wound [Not Recovered/Not Resolved]
  - Impaired healing [Not Recovered/Not Resolved]
